FAERS Safety Report 23159252 (Version 1)
Quarter: 2023Q4

REPORT INFORMATION
  Report Type: Spontaneous
  Country: GB (occurrence: GB)
  Receive Date: 20231108
  Receipt Date: 20231108
  Transmission Date: 20240110
  Serious: Yes (Death)
  Sender: FDA-Public Use
  Company Number: GB-BRAEBURN INC-2023BBN00099

PATIENT
  Age: 51 Year
  Sex: Male

DRUGS (3)
  1. BUPRENORPHINE [Suspect]
     Active Substance: BUPRENORPHINE
     Indication: Drug use disorder
     Dosage: 96 MG
     Route: 065
     Dates: start: 20220128, end: 20221118
  2. BUPRENORPHINE [Suspect]
     Active Substance: BUPRENORPHINE
     Indication: Drug use disorder
     Dosage: 64 MG, 1X/MONTH
     Route: 065
     Dates: start: 20211210, end: 20220128
  3. BUPRENORPHINE [Suspect]
     Active Substance: BUPRENORPHINE
     Indication: Drug use disorder
     Dosage: 16 MG, 1X/WEEK
     Route: 065
     Dates: start: 20211203, end: 20211210

REACTIONS (1)
  - Chronic obstructive pulmonary disease [Fatal]
